FAERS Safety Report 6550396-X (Version None)
Quarter: 2010Q1

REPORT INFORMATION
  Report Type: 
  Country: None (occurrence: None)
  Receive Date: 20100125
  Receipt Date: 20100118
  Transmission Date: 20100710
  Serious: Yes (Hospitalization, Other)
  Sender: FDA-Public Use
  Company Number: US-PFIZER INC-2010007955

PATIENT
  Sex: Male
  Weight: 75 kg

DRUGS (7)
  1. CHANTIX [Suspect]
     Route: 048
     Dates: start: 20090101, end: 20090101
  2. XANAX [Suspect]
     Dosage: FREQUENCY: 2X/DAY,
     Route: 048
  3. NEURONTIN [Concomitant]
     Indication: NEUROPATHY PERIPHERAL
     Dosage: UNK MG, UNK
     Route: 048
  4. NICOTROL [Concomitant]
     Indication: SMOKING CESSATION THERAPY
  5. SOMA [Concomitant]
     Indication: PAIN
     Dosage: FREQUENCY: 4X/DAY,
  6. OXYCONTIN [Concomitant]
     Indication: PAIN
     Dosage: FREQUENCY: AS NEEDED,
  7. OXYCODONE [Concomitant]
     Dosage: 15 MG, AS NEEDED
     Route: 048

REACTIONS (2)
  - CHRONIC OBSTRUCTIVE PULMONARY DISEASE [None]
  - SELF INJURIOUS BEHAVIOUR [None]
